FAERS Safety Report 22977621 (Version 2)
Quarter: 2023Q4

REPORT INFORMATION
  Report Type: Other
  Country: GB (occurrence: GB)
  Receive Date: 20230925
  Receipt Date: 20231017
  Transmission Date: 20240110
  Serious: Yes (Disabling, Other)
  Sender: FDA-Public Use
  Company Number: GB-SANOFI-01755603

PATIENT

DRUGS (5)
  1. TOPIRAMATE [Suspect]
     Active Substance: TOPIRAMATE
     Indication: Product used for unknown indication
     Dosage: UNK
     Route: 065
  2. TOPIRAMATE [Suspect]
     Active Substance: TOPIRAMATE
     Dosage: 75 MILLIGRAM, BID
     Route: 065
     Dates: start: 202211
  3. EPILIM [Interacting]
     Active Substance: VALPROATE SODIUM
     Indication: Epilepsy
     Dosage: UNK
     Route: 065
  4. EPILIM [Interacting]
     Active Substance: VALPROATE SODIUM
     Dosage: 1500 MILLIGRAM, QD
     Route: 065
  5. VALPROATE SODIUM [Suspect]
     Active Substance: VALPROATE SODIUM
     Indication: Epilepsy
     Dosage: 1500 MILLIGRAM, QD
     Route: 048

REACTIONS (27)
  - Foetal death [Unknown]
  - Varicose vein operation [Unknown]
  - COVID-19 [Unknown]
  - Drug interaction [Unknown]
  - Meningitis [Unknown]
  - Meningioma [Unknown]
  - Diverticulitis [Unknown]
  - Bedridden [Unknown]
  - Disturbance in attention [Unknown]
  - Pulse abnormal [Unknown]
  - Laryngeal inflammation [Unknown]
  - Inflammation [Unknown]
  - Peripheral vascular disorder [Unknown]
  - Aphonia [Unknown]
  - Dermatitis [Unknown]
  - Headache [Unknown]
  - Blister [Unknown]
  - Rash macular [Unknown]
  - Aphasia [Unknown]
  - Muscle spasms [Unknown]
  - Amnesia [Unknown]
  - Coordination abnormal [Unknown]
  - Seizure [Unknown]
  - Weight decreased [Unknown]
  - Pruritus [Unknown]
  - Drug ineffective [Unknown]
  - Maternal exposure during pregnancy [Unknown]

NARRATIVE: CASE EVENT DATE: 20050101
